FAERS Safety Report 4791545-3 (Version None)
Quarter: 2005Q4

REPORT INFORMATION
  Report Type: 
  Country: None (occurrence: None)
  Receive Date: 20051007
  Receipt Date: 20050214
  Transmission Date: 20060501
  Serious: No
  Sender: FDA-Public Use
  Company Number: US-BRISTOL-MYERS SQUIBB COMPANY-12860847

PATIENT
  Age: 41 Year
  Sex: Female
  Weight: 57 kg

DRUGS (4)
  1. AVAPRO [Suspect]
     Indication: HYPERTENSION
     Route: 048
     Dates: start: 20040101, end: 20040801
  2. ATACAND [Suspect]
     Indication: BLOOD PRESSURE INCREASED
  3. MAVIK [Suspect]
     Indication: BLOOD PRESSURE INCREASED
  4. NONE [Concomitant]

REACTIONS (8)
  - DYSPNOEA [None]
  - GLOSSODYNIA [None]
  - LARYNGITIS [None]
  - SINUS DISORDER [None]
  - SINUSITIS [None]
  - SWOLLEN TONGUE [None]
  - TONGUE DISCOLOURATION [None]
  - URINARY TRACT INFECTION [None]
